FAERS Safety Report 4760525-6 (Version None)
Quarter: 2005Q3

REPORT INFORMATION
  Report Type: 
  Country: None (occurrence: None)
  Receive Date: 20050823
  Receipt Date: 20050428
  Transmission Date: 20060218
  Serious: Yes (Congenital Anomaly)
  Sender: FDA-Public Use
  Company Number: 403012

PATIENT
  Sex: Female

DRUGS (2)
  1. ACCUTANE [Suspect]
     Indication: ACNE CYSTIC
     Dosage: 50 MG DAILY
     Dates: start: 20000615
  2. ORAL CONTRACEPTION (ORAL CONTRACTION NOS) [Concomitant]

REACTIONS (15)
  - CONGENITAL ANOMALY [None]
  - CONGENITAL EYE DISORDER [None]
  - CONGENITAL EYELID MALFORMATION [None]
  - CONGENITAL NOSE MALFORMATION [None]
  - EXTRAOCULAR MUSCLE DISORDER [None]
  - EYE DISORDER [None]
  - EYELID DISORDER [None]
  - EYELID PTOSIS CONGENITAL [None]
  - FACIAL DYSMORPHISM [None]
  - HEAD DEFORMITY [None]
  - IIIRD NERVE DISORDER [None]
  - PUPIL FIXED [None]
  - PUPILS UNEQUAL [None]
  - STRABISMUS [None]
  - VISUAL ACUITY REDUCED [None]
